FAERS Safety Report 24751913 (Version 2)
Quarter: 2025Q1

REPORT INFORMATION
  Report Type: Spontaneous
  Country: US (occurrence: US)
  Receive Date: 20241219
  Receipt Date: 20250318
  Transmission Date: 20250409
  Serious: No
  Sender: AUROBINDO
  Company Number: US-AUROBINDO-AUR-APL-2024-055545

PATIENT
  Sex: Female

DRUGS (1)
  1. MEDROXYPROGESTERONE [Suspect]
     Active Substance: MEDROXYPROGESTERONE
     Indication: Product used for unknown indication
     Route: 065

REACTIONS (4)
  - Rash macular [Recovering/Resolving]
  - Skin warm [Recovering/Resolving]
  - Skin tightness [Recovering/Resolving]
  - Injection site erythema [Recovering/Resolving]
